FAERS Safety Report 9655911 (Version 1)
Quarter: 2013Q4

REPORT INFORMATION
  Report Type: Spontaneous
  Country: US (occurrence: US)
  Receive Date: 20131030
  Receipt Date: 20131030
  Transmission Date: 20140711
  Serious: Yes (Death)
  Sender: FDA-Public Use
  Company Number: US-BRISTOL-MYERS SQUIBB COMPANY-19630722

PATIENT
  Age: 87 Year
  Sex: Female

DRUGS (5)
  1. ELIQUIS [Suspect]
  2. FUROSEMIDE [Concomitant]
  3. POTASSIUM [Concomitant]
  4. METOPROLOL [Concomitant]
  5. LEVOTHYROXINE [Concomitant]

REACTIONS (1)
  - Death [Fatal]
